FAERS Safety Report 23154968 (Version 1)
Quarter: 2023Q4

REPORT INFORMATION
  Report Type: Spontaneous
  Country: US (occurrence: None)
  Receive Date: 20231107
  Receipt Date: 20231107
  Transmission Date: 20240110
  Serious: Yes (Death)
  Sender: FDA-Public Use
  Company Number: None

PATIENT
  Age: 22 Year
  Sex: Female
  Weight: 65.75 kg

DRUGS (1)
  1. KYMRIAH [Suspect]
     Active Substance: TISAGENLECLEUCEL
     Indication: B-cell type acute leukaemia
     Dosage: FREQUENCY : ONCE;?
     Route: 042
     Dates: start: 20230926, end: 20230926

REACTIONS (8)
  - Immune effector cell-associated neurotoxicity syndrome [None]
  - Cytokine release syndrome [None]
  - Haemophagocytic lymphohistiocytosis [None]
  - Bronchopulmonary aspergillosis [None]
  - Systemic candida [None]
  - Staphylococcal bacteraemia [None]
  - Respiratory failure [None]
  - Multiple organ dysfunction syndrome [None]

NARRATIVE: CASE EVENT DATE: 20230926
